FAERS Safety Report 18628553 (Version 1)
Quarter: 2020Q4

REPORT INFORMATION
  Report Type: Spontaneous
  Country: FR (occurrence: FR)
  Receive Date: 20201217
  Receipt Date: 20201217
  Transmission Date: 20210114
  Serious: Yes (Hospitalization)
  Sender: FDA-Public Use
  Company Number: FR-TEVA-2020-FR-1858588

PATIENT
  Age: 80 Year
  Sex: Male

DRUGS (10)
  1. HYDROCORTISONE. [Concomitant]
     Active Substance: HYDROCORTISONE
     Dosage: UNIT DOSE : 10 MG
     Route: 048
  2. IBUPROFENE [Suspect]
     Active Substance: IBUPROFEN
     Indication: BACK PAIN
     Dosage: UNSPECIFIED
     Route: 048
     Dates: start: 202001, end: 20200204
  3. SEROPRAM (CITALOPRAM HYDROBROMIDE) [Concomitant]
     Active Substance: CITALOPRAM HYDROBROMIDE
     Dosage: UNIT DOSE : 1 DOSAGE FORMS
     Route: 048
  4. NEBILOX 5 MG, COMPRIME QUADRISECABLE [Concomitant]
     Dosage: UNIT DOSE : 1 DOSAGE FORMS
     Route: 048
  5. KARDEGIC [Concomitant]
     Active Substance: ASPIRIN DL-LYSINE
     Dosage: UNIT DOSE : 1 DOSAGE FORMS
     Route: 048
  6. ZYMAD [Concomitant]
     Active Substance: CHOLECALCIFEROL
     Dosage: UNIT DOSE : 1 DOSAGE FORMS
     Route: 048
  7. LISINOPRIL ANHYDRE [Suspect]
     Active Substance: LISINOPRIL
     Indication: HYPERTENSION
     Dosage: UNIT DOSE : 20 MG
     Route: 048
     Dates: end: 20200204
  8. XYZALL 5 MG, COMPRIME PELLICULE [Concomitant]
     Dosage: UNIT DOSE : 1 DOSAGE FORMS
     Route: 048
  9. SIMVASTATINE [Concomitant]
     Active Substance: SIMVASTATIN
     Dosage: UNIT DOSE : 20 MG
     Route: 048
  10. IXPRIM [Concomitant]
     Active Substance: ACETAMINOPHEN\TRAMADOL HYDROCHLORIDE
     Dosage: UNIT DOSE : 1 DOSAGE FORMS
     Route: 048

REACTIONS (1)
  - Acute kidney injury [Recovered/Resolved]

NARRATIVE: CASE EVENT DATE: 20200204
